FAERS Safety Report 4335143-4 (Version None)
Quarter: 2004Q1

REPORT INFORMATION
  Report Type: 
  Country: None (occurrence: None)
  Receive Date: 20040329
  Receipt Date: 20031204
  Transmission Date: 20041129
  Serious: No
  Sender: FDA-Public Use
  Company Number: 03P-163-0244036-00

PATIENT
  Age: 60 Year
  Sex: Female

DRUGS (3)
  1. HUMIRA [Suspect]
     Indication: RHEUMATOID ARTHRITIS
     Dosage: 40 MG, 1 IN 2 WK, SUBCUTANEOUS
     Route: 058
     Dates: start: 20030923, end: 20031118
  2. SULFASALAZINE [Concomitant]
  3. PREDNISONE [Concomitant]

REACTIONS (7)
  - DIARRHOEA [None]
  - GLOSSODYNIA [None]
  - INGROWING NAIL [None]
  - INJECTION SITE PAIN [None]
  - NAUSEA [None]
  - PHARYNGOLARYNGEAL PAIN [None]
  - RHINITIS [None]
